FAERS Safety Report 4847240-5 (Version None)
Quarter: 2005Q4

REPORT INFORMATION
  Report Type: 
  Country: None (occurrence: None)
  Receive Date: 20051207
  Receipt Date: 20050930
  Transmission Date: 20060501
  Serious: Yes (Other)
  Sender: FDA-Public Use
  Company Number: JP-JPN-A20052354

PATIENT
  Age: 34 Year
  Sex: Female

DRUGS (6)
  1. ZOVIRAX [Suspect]
     Indication: ENCEPHALITIS
     Route: 042
  2. STEROID PULSE THERAPY [Suspect]
     Indication: DRUG USE FOR UNKNOWN INDICATION
     Route: 065
  3. IMMUNE GLOBULIN INTRAVENOUS (HUMAN) [Suspect]
     Indication: DRUG USE FOR UNKNOWN INDICATION
     Route: 065
  4. PHENYTOIN [Suspect]
     Indication: DRUG USE FOR UNKNOWN INDICATION
     Route: 065
  5. UNSPECIFIED DRUG [Concomitant]
     Indication: INFECTION
     Dosage: 15G THREE TIMES PER DAY
     Route: 042
     Dates: start: 20050607, end: 20050609
  6. PANSPORIN [Concomitant]
     Route: 065

REACTIONS (3)
  - DRUG EXPOSURE DURING PREGNANCY [None]
  - PREMATURE LABOUR [None]
  - SMALL FOR DATES BABY [None]
